FAERS Safety Report 4840223-0 (Version None)
Quarter: 2005Q4

REPORT INFORMATION
  Report Type: 
  Country: None (occurrence: None)
  Receive Date: 20051129
  Receipt Date: 20051004
  Transmission Date: 20060501
  Serious: Yes (Hospitalization, Disabling)
  Sender: FDA-Public Use
  Company Number: US-MERCK-0510USA02392

PATIENT
  Age: 38 Year
  Sex: Female
  Weight: 59 kg

DRUGS (3)
  1. VIOXX [Suspect]
     Indication: ARTHROPATHY
     Route: 048
     Dates: start: 19990601, end: 20031201
  2. HYDROXYCHLOROQUINE SULFATE [Concomitant]
     Route: 065
  3. CELEBREX [Concomitant]
     Route: 065

REACTIONS (5)
  - COLON CANCER [None]
  - DEPRESSION [None]
  - MYOCARDIAL INFARCTION [None]
  - SYSTEMIC LUPUS ERYTHEMATOSUS [None]
  - VERTEBRAL INJURY [None]
